FAERS Safety Report 24322739 (Version 2)
Quarter: 2024Q4

REPORT INFORMATION
  Report Type: Spontaneous
  Country: FR (occurrence: FR)
  Receive Date: 20240916
  Receipt Date: 20241027
  Transmission Date: 20250115
  Serious: Yes (Other)
  Sender: AUROBINDO
  Company Number: FR-AFSSAPS-AVBX2024000496

PATIENT
  Age: 27 Year
  Sex: Male

DRUGS (1)
  1. PREGABALIN [Suspect]
     Active Substance: PREGABALIN
     Indication: Drug dependence
     Dosage: 600 MILLIGRAM, ONCE A DAY (600MG/D)
     Route: 065
     Dates: start: 2024

REACTIONS (2)
  - Drug use disorder [Not Recovered/Not Resolved]
  - Behaviour disorder [Recovered/Resolved]
